FAERS Safety Report 16409724 (Version 1)
Quarter: 2019Q2

REPORT INFORMATION
  Report Type: Spontaneous
  Country: CA (occurrence: CA)
  Receive Date: 20190610
  Receipt Date: 20190610
  Transmission Date: 20190711
  Serious: Yes (Death)
  Sender: FDA-Public Use
  Company Number: CA-PFIZER INC-2019244458

PATIENT
  Age: 25 Year
  Sex: Female
  Weight: 40 kg

DRUGS (2)
  1. CEFAZOLIN [Suspect]
     Active Substance: CEFAZOLIN
     Indication: CELLULITIS
     Dosage: 1000 MG, 3X/DAY
     Route: 042
  2. CEFAZOLIN [Suspect]
     Active Substance: CEFAZOLIN
     Indication: BURN INFECTION

REACTIONS (2)
  - Cardiac arrest [Fatal]
  - Anaphylactic reaction [Fatal]
